FAERS Safety Report 18451008 (Version 1)
Quarter: 2020Q4

REPORT INFORMATION
  Report Type: Spontaneous
  Country: JP (occurrence: JP)
  Receive Date: 20201101
  Receipt Date: 20201101
  Transmission Date: 20210114
  Serious: Yes (Other)
  Sender: FDA-Public Use
  Company Number: JP-009507513-2010JPN002541J

PATIENT
  Age: 71 Year
  Sex: Male

DRUGS (1)
  1. CUBICIN [Suspect]
     Active Substance: DAPTOMYCIN
     Indication: STAPHYLOCOCCAL INFECTION
     Dosage: UNK
     Route: 041

REACTIONS (4)
  - Pyrexia [Unknown]
  - Minimum inhibitory concentration increased [Unknown]
  - Staphylococcus test positive [Unknown]
  - Cardiac failure [Unknown]
